FAERS Safety Report 15772967 (Version 1)
Quarter: 2018Q4

REPORT INFORMATION
  Report Type: Spontaneous
  Country: FR (occurrence: FR)
  Receive Date: 20181228
  Receipt Date: 20181228
  Transmission Date: 20190205
  Serious: Yes (Life-Threatening)
  Sender: FDA-Public Use
  Company Number: FR-TEVA-2018-FR-991458

PATIENT
  Age: 80 Year
  Sex: Male

DRUGS (8)
  1. INNOVAIR [Suspect]
     Active Substance: BECLOMETHASONE DIPROPIONATE\FORMOTEROL
     Indication: RESPIRATORY FAILURE
     Dosage: 2 DOSAGE FORMS DAILY;
     Route: 055
     Dates: end: 20181110
  2. AMIODARONE [Suspect]
     Active Substance: AMIODARONE
     Indication: ATRIAL FIBRILLATION
     Dosage: 100 MILLIGRAM DAILY;
     Route: 048
     Dates: end: 20181114
  3. COZAAR 50 MG, COMPRIM? ENROB? S?CABLE [Suspect]
     Active Substance: LOSARTAN POTASSIUM
     Indication: HYPERTENSION
     Dosage: 1 DOSAGE FORMS DAILY;
     Route: 048
     Dates: end: 20181114
  4. SPIRIVA [Suspect]
     Active Substance: TIOTROPIUM BROMIDE MONOHYDRATE
     Indication: RESPIRATORY FAILURE
     Dosage: 1 DOSAGE FORMS DAILY;
     Route: 055
     Dates: end: 20181110
  5. LEXOMIL ROCHE COMPRIME BAGUETTE, COMPRIM? QUADRIS?CABLE [Suspect]
     Active Substance: BROMAZEPAM
     Indication: ANXIETY
     Dosage: 3 MILLIGRAM DAILY;
     Route: 048
     Dates: end: 20181109
  6. PREVISCAN 20 MG, COMPRIM? S?CABLE [Suspect]
     Active Substance: FLUINDIONE
     Indication: ATRIAL FIBRILLATION
     Dosage: 1 DOSAGE FORMS DAILY;
     Route: 048
     Dates: end: 20181113
  7. FUROSEMIDE. [Suspect]
     Active Substance: FUROSEMIDE
     Indication: HYPERTENSION
     Dosage: 60 MILLIGRAM DAILY;
     Route: 048
     Dates: end: 20181114
  8. DIFFU K, G?LULE [Suspect]
     Active Substance: POTASSIUM CHLORIDE
     Indication: MINERAL SUPPLEMENTATION
     Dosage: 1800 MILLIGRAM DAILY;
     Route: 048
     Dates: end: 20181113

REACTIONS (1)
  - Interstitial lung disease [Not Recovered/Not Resolved]

NARRATIVE: CASE EVENT DATE: 201811
